FAERS Safety Report 16710027 (Version 1)
Quarter: 2019Q4

REPORT INFORMATION
  Report Type: Spontaneous
  Country: US (occurrence: US)
  Receive Date: 20190815
  Receipt Date: 20190815
  Transmission Date: 20200122
  Serious: Yes (Other)
  Sender: FDA-Public Use
  Company Number: None

PATIENT
  Age: 20 Year
  Sex: Female
  Weight: 67.5 kg

DRUGS (1)
  1. CEPHALEXIN. [Suspect]
     Active Substance: CEPHALEXIN
     Indication: SKIN INFECTION
     Dosage: ?          QUANTITY:1 CAPSULE(S);?
     Route: 048
     Dates: start: 20190706, end: 20190712

REACTIONS (5)
  - Urticaria [None]
  - Impaired healing [None]
  - Skin weeping [None]
  - Drug hypersensitivity [None]
  - Symptom recurrence [None]

NARRATIVE: CASE EVENT DATE: 20190712
